FAERS Safety Report 10842964 (Version 1)
Quarter: 2015Q1

REPORT INFORMATION
  Report Type: Spontaneous
  Country: US (occurrence: US)
  Receive Date: 20150220
  Receipt Date: 20150220
  Transmission Date: 20150721
  Serious: No
  Sender: FDA-Public Use
  Company Number: US-ABBVIE-14P-163-1257946-00

PATIENT
  Age: 54 Year
  Sex: Female
  Weight: 50.85 kg

DRUGS (15)
  1. VITAMINS NOS [Concomitant]
     Active Substance: VITAMINS
     Indication: VITAMIN SUPPLEMENTATION
  2. HUMIRA [Suspect]
     Active Substance: ADALIMUMAB
     Indication: SYSTEMIC LUPUS ERYTHEMATOSUS
  3. HUMIRA [Suspect]
     Active Substance: ADALIMUMAB
     Indication: SJOGREN^S SYNDROME
  4. PLAQUENIL [Concomitant]
     Active Substance: HYDROXYCHLOROQUINE SULFATE
     Indication: OSTEOARTHRITIS
  5. OXYCODONE [Concomitant]
     Active Substance: OXYCODONE
     Indication: SYSTEMIC LUPUS ERYTHEMATOSUS
  6. VITAMIN D [Concomitant]
     Active Substance: CHOLECALCIFEROL
     Indication: VITAMIN SUPPLEMENTATION
  7. ARAVA [Concomitant]
     Active Substance: LEFLUNOMIDE
     Indication: SJOGREN^S SYNDROME
  8. PLAQUENIL [Concomitant]
     Active Substance: HYDROXYCHLOROQUINE SULFATE
     Indication: SJOGREN^S SYNDROME
  9. OXYCODONE [Concomitant]
     Active Substance: OXYCODONE
     Indication: SJOGREN^S SYNDROME
  10. PLAQUENIL [Concomitant]
     Active Substance: HYDROXYCHLOROQUINE SULFATE
     Indication: SYSTEMIC LUPUS ERYTHEMATOSUS
  11. ARAVA [Concomitant]
     Active Substance: LEFLUNOMIDE
     Indication: OSTEOARTHRITIS
  12. ARAVA [Concomitant]
     Active Substance: LEFLUNOMIDE
     Indication: SYSTEMIC LUPUS ERYTHEMATOSUS
  13. HUMIRA [Suspect]
     Active Substance: ADALIMUMAB
     Indication: OSTEOARTHRITIS
     Dates: start: 20140610, end: 20140610
  14. OXYCODONE [Concomitant]
     Active Substance: OXYCODONE
     Indication: OSTEOARTHRITIS
  15. ESTRACE [Concomitant]
     Active Substance: ESTRADIOL
     Indication: HORMONE REPLACEMENT THERAPY

REACTIONS (2)
  - Off label use [Not Recovered/Not Resolved]
  - Drug dispensing error [Not Recovered/Not Resolved]

NARRATIVE: CASE EVENT DATE: 20140610
